FAERS Safety Report 11862910 (Version 1)
Quarter: 2015Q4

REPORT INFORMATION
  Report Type: Spontaneous
  Country: US (occurrence: None)
  Receive Date: 20151222
  Receipt Date: 20151222
  Transmission Date: 20160305
  Serious: Yes (Disabling)
  Sender: FDA-Public Use
  Company Number: None

PATIENT
  Sex: Female

DRUGS (9)
  1. ARMOUR THYROID [Suspect]
     Active Substance: THYROID, PORCINE\THYROID, UNSPECIFIED
     Indication: THYROIDITIS CHRONIC
     Dosage: 90 MG, 120 MG?1 PILL IN AM, DAILY?ALTERNATING DOSE; 1 DAY: 90 MG NEXT DAY: 120 MG ?BY MOUTH (SHALLOWED)
     Route: 048
     Dates: start: 201505
  2. METFORMIN [Concomitant]
     Active Substance: METFORMIN HYDROCHLORIDE
  3. VIVISCAL [Concomitant]
  4. ARMOUR THYROID [Suspect]
     Active Substance: THYROID, PORCINE\THYROID, UNSPECIFIED
     Indication: HYPOTHYROIDISM
     Dosage: 90 MG, 120 MG?1 PILL IN AM, DAILY?ALTERNATING DOSE; 1 DAY: 90 MG NEXT DAY: 120 MG ?BY MOUTH (SHALLOWED)
     Route: 048
     Dates: start: 201505
  5. BIOTIN [Concomitant]
     Active Substance: BIOTIN
  6. SPIRONOLACTONE. [Concomitant]
     Active Substance: SPIRONOLACTONE
  7. ARMOUR THYROID [Suspect]
     Active Substance: THYROID, PORCINE\THYROID, UNSPECIFIED
     Route: 048
     Dates: start: 201505
  8. VITAMIN D [Concomitant]
     Active Substance: CHOLECALCIFEROL
  9. DESOGEN [Concomitant]
     Active Substance: DESOGESTREL\ETHINYL ESTRADIOL

REACTIONS (6)
  - Blood thyroid stimulating hormone decreased [None]
  - Hypothyroidism [None]
  - Drug ineffective [None]
  - Endocrine disorder [None]
  - Condition aggravated [None]
  - Product substitution issue [None]

NARRATIVE: CASE EVENT DATE: 2015
